FAERS Safety Report 10475521 (Version 1)
Quarter: 2014Q3

REPORT INFORMATION
  Report Type: Spontaneous
  Country: CH (occurrence: CH)
  Receive Date: 20140925
  Receipt Date: 20140925
  Transmission Date: 20150326
  Serious: Yes (Hospitalization)
  Sender: FDA-Public Use
  Company Number: CH-BRISTOL-MYERS SQUIBB COMPANY-21418504

PATIENT
  Age: 84 Year
  Sex: Female
  Weight: 56 kg

DRUGS (15)
  1. BENERVA [Concomitant]
     Active Substance: THIAMINE
  2. IPRATROPIUM [Concomitant]
     Active Substance: IPRATROPIUM
     Indication: BRONCHOPNEUMONIA
  3. CO-DAFALGAN [Suspect]
     Active Substance: ACETAMINOPHEN\CODEINE PHOSPHATE
     Route: 048
  4. BECOZYME [Concomitant]
  5. SPASMO-URGENIN [Concomitant]
     Indication: INCONTINENCE
  6. LACRYVISC [Concomitant]
     Indication: OCULAR DISCOMFORT
  7. ASPIRIN CARDIO [Suspect]
     Active Substance: ASPIRIN
     Indication: ISCHAEMIC CARDIOMYOPATHY
     Route: 048
  8. APROVEL [Concomitant]
     Active Substance: IRBESARTAN
     Indication: HYPERTENSION
  9. CALCIMAGON-D3 [Concomitant]
     Active Substance: CALCIUM\CHOLECALCIFEROL
  10. CEFTRIAXONE. [Suspect]
     Active Substance: CEFTRIAXONE
     Indication: BRONCHOPNEUMONIA
     Dosage: 04-07JUL14
     Route: 041
     Dates: start: 20140704, end: 20140707
  11. BELOC [Concomitant]
     Active Substance: METOPROLOL TARTRATE
     Indication: HYPERTENSION
  12. COSOPT [Concomitant]
     Active Substance: DORZOLAMIDE HYDROCHLORIDE\TIMOLOL MALEATE
     Indication: GLAUCOMA
     Dosage: COSOPT-S
  13. GLUCOPHAGE [Suspect]
     Active Substance: METFORMIN HYDROCHLORIDE
     Indication: TYPE 2 DIABETES MELLITUS
     Route: 048
  14. CLARITHROMYCIN. [Suspect]
     Active Substance: CLARITHROMYCIN
     Indication: BRONCHOPNEUMONIA
     Dosage: 04-07JUL14
     Route: 048
     Dates: start: 20140704, end: 20140707
  15. ARIXTRA [Concomitant]
     Active Substance: FONDAPARINUX SODIUM

REACTIONS (2)
  - Leukopenia [Recovered/Resolved]
  - Bronchopneumonia [Unknown]

NARRATIVE: CASE EVENT DATE: 201407
